FAERS Safety Report 15643120 (Version 5)
Quarter: 2019Q4

REPORT INFORMATION
  Report Type: Spontaneous
  Country: DE (occurrence: DE)
  Receive Date: 20181121
  Receipt Date: 20191025
  Transmission Date: 20200122
  Serious: Yes (Death, Life-Threatening, Other)
  Sender: FDA-Public Use
  Company Number: DE-TORRENT-00012416

PATIENT
  Age: 83 Year
  Sex: Female
  Weight: 98 kg

DRUGS (18)
  1. HYDROCHLOROTHIAZIDE. [Concomitant]
     Active Substance: HYDROCHLOROTHIAZIDE
     Indication: PRODUCT USED FOR UNKNOWN INDICATION
     Dosage: DAILY DOSE: 25 MG MILLGRAM(S) EVERY DAYS
  2. L-THYROXIN [Concomitant]
     Active Substance: LEVOTHYROXINE SODIUM
     Indication: PRODUCT USED FOR UNKNOWN INDICATION
     Dosage: 125 G, QD IN THE MORNING
     Route: 065
  3. RANITIC [Concomitant]
     Active Substance: RANITIDINE HYDROCHLORIDE
     Indication: GASTRIC DISORDER
     Dosage: 300 MG, QD IN THE MORNING
     Route: 065
  4. AMLODIPINE [Concomitant]
     Active Substance: AMLODIPINE BESYLATE
     Indication: HYPERTENSION
     Dosage: 5 MG, QD IN THE MORNING
     Route: 065
  5. CALCIUM D3 [Concomitant]
     Active Substance: CALCIUM\CHOLECALCIFEROL
     Indication: PRODUCT USED FOR UNKNOWN INDICATION
     Dosage: DAILY DOSE: 1 DF DOSAGE FORM EVERY DAYS
  6. CHOLECALCIFEROL [Concomitant]
     Active Substance: CHOLECALCIFEROL
     Indication: OSTEOPOROSIS
     Dosage: 1000 IU, QD IN THE MORNING
     Route: 065
  7. SEROQUEL XR [Concomitant]
     Active Substance: QUETIAPINE FUMARATE
     Indication: PRODUCT USED FOR UNKNOWN INDICATION
     Dosage: 150 MG, QD AT NIGHT
     Route: 065
  8. ELIQUIS [Interacting]
     Active Substance: APIXABAN
     Indication: CEREBROVASCULAR ACCIDENT PROPHYLAXIS
     Dosage: 2.5 MG, BID
     Route: 065
     Dates: start: 20180713, end: 20180724
  9. AMIODARONE [Concomitant]
     Active Substance: AMIODARONE
     Indication: ATRIAL FIBRILLATION
     Dosage: 300 MG, UNKNOWN
     Route: 042
  10. FOLIC ACID. [Concomitant]
     Active Substance: FOLIC ACID
     Indication: PRODUCT USED FOR UNKNOWN INDICATION
     Dosage: 5 MG, QWK IN THE MORNING ON TUESDAYS
     Route: 065
  11. METOPROLOL. [Concomitant]
     Active Substance: METOPROLOL
     Indication: ATRIAL FIBRILLATION
     Dosage: 5 MG, UNKNOWN
     Route: 065
  12. MTX [Concomitant]
     Active Substance: METHOTREXATE SODIUM
     Indication: RHEUMATOID ARTHRITIS
     Dosage: 15 MG, QWK ON MONDAYS
     Route: 065
  13. CLEXANE [Suspect]
     Active Substance: ENOXAPARIN SODIUM
     Indication: PRODUCT USED FOR UNKNOWN INDICATION
     Dosage: 6000 IU, QD
     Route: 058
     Dates: start: 20180724
  14. BISOPROLOL/HYDROCHLOROTHIAZID [Concomitant]
     Indication: PRODUCT USED FOR UNKNOWN INDICATION
     Dosage: 1 DF=5/12.5MG, QD IN THE MORNING
     Route: 065
  15. CANDESARTAN/HCT [Concomitant]
     Active Substance: CANDESARTAN CILEXETIL\HYDROCHLOROTHIAZIDE
     Indication: PRODUCT USED FOR UNKNOWN INDICATION
     Dosage: 1 DF, QD IN THE MORNING
     Route: 065
  16. BISOPROLOL [Concomitant]
     Active Substance: BISOPROLOL
     Indication: PRODUCT USED FOR UNKNOWN INDICATION
     Dosage: DAILY DOSE: 5 MG MILLGRAM(S) EVERY DAYS
  17. QUETIAPINE. [Concomitant]
     Active Substance: QUETIAPINE
     Indication: PRODUCT USED FOR UNKNOWN INDICATION
     Dosage: DAILY DOSE: 150 MG MILLGRAM(S) EVERY DAYS
  18. VENLAFAXINE HCL [Interacting]
     Active Substance: VENLAFAXINE HYDROCHLORIDE
     Indication: PSYCHOTIC DISORDER
     Dosage: 37.5 MG, QD IN THE MORNING
     Route: 048

REACTIONS (13)
  - Petechiae [Fatal]
  - Off label use [Unknown]
  - Drug interaction [Fatal]
  - Shock haemorrhagic [Fatal]
  - Retroperitoneal haemorrhage [Fatal]
  - Haemorrhagic diathesis [Fatal]
  - Hypertensive heart disease [Fatal]
  - Prescribed underdose [Unknown]
  - Retroperitoneal haematoma [Fatal]
  - Acute kidney injury [Fatal]
  - Urinary tract infection bacterial [Fatal]
  - Intentional product use issue [Unknown]
  - Inflammation [Fatal]

NARRATIVE: CASE EVENT DATE: 20180719
